FAERS Safety Report 6038365-X (Version None)
Quarter: 2009Q1

REPORT INFORMATION
  Report Type: 
  Country: None (occurrence: None)
  Receive Date: 20090113
  Receipt Date: 20090113
  Transmission Date: 20090719
  Serious: Yes (Other)
  Sender: FDA-Public Use
  Company Number: None

PATIENT
  Age: 29 Year
  Sex: Female
  Weight: 64.8644 kg

DRUGS (2)
  1. CHANTIX [Suspect]
     Indication: SMOKING CESSATION THERAPY
     Dosage: .05  2 X DAILY 1ST DAY PO
     Route: 048
     Dates: start: 20081214, end: 20090107
  2. CHANTIX [Suspect]
     Dosage: .05 1 X DAILY 2ND TO 120TH DAY PO
     Route: 048

REACTIONS (10)
  - ABNORMAL DREAMS [None]
  - AGGRESSION [None]
  - AGITATION [None]
  - ANGER [None]
  - DEPRESSED MOOD [None]
  - HOMICIDAL IDEATION [None]
  - NAUSEA [None]
  - PHYSICAL ASSAULT [None]
  - SUICIDAL IDEATION [None]
  - THINKING ABNORMAL [None]
